FAERS Safety Report 5333583-8 (Version None)
Quarter: 2007Q2

REPORT INFORMATION
  Report Type: 
  Country: None (occurrence: None)
  Receive Date: 20070308
  Receipt Date: 20061102
  Transmission Date: 20071010
  Serious: No
  Sender: FDA-Public Use
  Company Number: 2006-BP-12850BP

PATIENT
  Age: 86 Year
  Sex: Female

DRUGS (1)
  1. SPIRIVA [Suspect]
     Indication: CHRONIC OBSTRUCTIVE PULMONARY DISEASE
     Dosage: 18 MCG (18 MCG, 2 PUFFS QD), IH
     Route: 055
     Dates: start: 20061026

REACTIONS (2)
  - DRY MOUTH [None]
  - FAECES DISCOLOURED [None]
